FAERS Safety Report 8241841-2 (Version None)
Quarter: 2012Q1

REPORT INFORMATION
  Report Type: 
  Country: None (occurrence: None)
  Receive Date: 20120328
  Receipt Date: 20120319
  Transmission Date: 20120608
  Serious: Yes (Other)
  Sender: FDA-Public Use
  Company Number: US-ELI_LILLY_AND_COMPANY-US201203005237

PATIENT
  Sex: Female

DRUGS (1)
  1. FORTEO [Suspect]
     Indication: OSTEOPOROSIS
     Dosage: UNK UNK, QD
     Route: 065

REACTIONS (7)
  - PELVIC PAIN [None]
  - PELVIC FRACTURE [None]
  - MUSCLE SPASMS [None]
  - WRIST FRACTURE [None]
  - INSOMNIA [None]
  - FALL [None]
  - BLOOD CALCIUM INCREASED [None]
